FAERS Safety Report 9400967 (Version 3)
Quarter: 2014Q1

REPORT INFORMATION
  Report Type: Spontaneous
  Country: US (occurrence: US)
  Receive Date: 20130715
  Receipt Date: 20140203
  Transmission Date: 20141002
  Serious: Yes (Hospitalization)
  Sender: FDA-Public Use
  Company Number: US-GLAXOSMITHKLINE-A1033121A

PATIENT
  Age: 57 Year
  Sex: Male

DRUGS (8)
  1. AVANDAMET [Suspect]
     Indication: TYPE 2 DIABETES MELLITUS
     Route: 048
     Dates: start: 20031112, end: 20041105
  2. AVANDIA [Suspect]
     Indication: DIABETES MELLITUS
     Route: 048
     Dates: start: 20041105, end: 20050215
  3. ATACAND [Concomitant]
  4. TOPROL XL [Concomitant]
  5. HYDROCHLOROTHIAZIDE [Concomitant]
  6. NASACORT [Concomitant]
  7. VITAMIN B12 [Concomitant]
  8. VIAGRA [Concomitant]

REACTIONS (3)
  - Myocardial infarction [Unknown]
  - Cerebrovascular accident [Unknown]
  - Coronary artery disease [Unknown]
